FAERS Safety Report 24249178 (Version 6)
Quarter: 2024Q4

REPORT INFORMATION
  Report Type: Report from Study
  Country: CN (occurrence: CN)
  Receive Date: 20240826
  Receipt Date: 20241213
  Transmission Date: 20250115
  Serious: Yes (Hospitalization, Other)
  Sender: PFIZER
  Company Number: CN-TAKEDA-2022TUS048459

PATIENT
  Age: 48 Year
  Sex: Male
  Weight: 57 kg

DRUGS (20)
  1. BRENTUXIMAB VEDOTIN [Suspect]
     Active Substance: BRENTUXIMAB VEDOTIN
     Indication: T-cell lymphoma
     Dosage: 100 MILLIGRAM, Q3WEEKS
     Route: 041
     Dates: start: 20220704
  2. EPIRUBICIN HYDROCHLORIDE [Suspect]
     Active Substance: EPIRUBICIN HYDROCHLORIDE
     Indication: T-cell lymphoma
     Dosage: 90 MILLIGRAM
     Route: 065
     Dates: start: 20220704
  3. CYCLOPHOSPHAMIDE [Suspect]
     Active Substance: CYCLOPHOSPHAMIDE
     Indication: T-cell lymphoma
     Dosage: 1.2 GRAM
     Route: 041
     Dates: start: 20220704
  4. PREDNISOLONE [Suspect]
     Active Substance: PREDNISOLONE
     Indication: T-cell lymphoma
     Dosage: 100 MILLIGRAM
     Route: 065
     Dates: start: 20220704
  5. DEXAMETHASONE SODIUM PHOSPHATE [Concomitant]
     Active Substance: DEXAMETHASONE SODIUM PHOSPHATE
     Indication: Chemotherapy
     Dosage: 5 MILLIGRAM
     Route: 042
     Dates: start: 20220704, end: 20220704
  6. DEXAMETHASONE SODIUM PHOSPHATE [Concomitant]
     Active Substance: DEXAMETHASONE SODIUM PHOSPHATE
     Indication: Allergy prophylaxis
  7. SODIUM BICARBONATE [Concomitant]
     Active Substance: SODIUM BICARBONATE
     Indication: Prophylaxis
     Dosage: 125 MILLILITER, QD
     Route: 042
     Dates: start: 20220705, end: 20220709
  8. MANNATIDE [Concomitant]
     Indication: Prophylaxis
     Dosage: 20 MILLIGRAM, QD
     Route: 042
     Dates: start: 20220705, end: 20220710
  9. FUROSEMIDE [Concomitant]
     Active Substance: FUROSEMIDE
     Indication: Polyuria
     Dosage: 20 MILLIGRAM, QD
     Route: 042
     Dates: start: 20220705, end: 20220706
  10. TROPISETRON HYDROCHLORIDE [Concomitant]
     Active Substance: TROPISETRON HYDROCHLORIDE
     Indication: Antiemetic supportive care
     Dosage: 5 MILLILITER, QD
     Route: 042
     Dates: start: 20220704, end: 20220706
  11. PREDNISOLONE [Concomitant]
     Active Substance: PREDNISOLONE
     Indication: T-cell lymphoma
     Dosage: 100 MILLIGRAM, QD
     Route: 042
     Dates: start: 20220705, end: 20220706
  12. PREDNISOLONE [Concomitant]
     Active Substance: PREDNISOLONE
     Dosage: 100 MILLIGRAM, QD
     Route: 042
     Dates: start: 20220707, end: 20220709
  13. ACETAMINOPHEN\ASPIRIN\CAFFEINE [Concomitant]
     Active Substance: ACETAMINOPHEN\ASPIRIN\CAFFEINE
     Indication: Pyrexia
     Dosage: UNK
     Route: 048
     Dates: start: 20220704, end: 20220704
  14. ACETAMINOPHEN\ASPIRIN\CAFFEINE [Concomitant]
     Active Substance: ACETAMINOPHEN\ASPIRIN\CAFFEINE
     Dosage: UNK
     Route: 048
     Dates: start: 20220705, end: 20220705
  15. COMPOUND SODIUM CHLORIDE [CALCIUM CHLORIDE;POTASSIUM CHLORIDE;SODIUM C [Concomitant]
     Indication: Prophylaxis
     Dosage: 500 MILLILITER
     Route: 042
     Dates: start: 20220705, end: 20220705
  16. INDOMETHACIN [Concomitant]
     Active Substance: INDOMETHACIN
     Indication: Pyrexia
     Dosage: 0.1 GRAM
     Route: 054
     Dates: start: 20220705, end: 20220705
  17. PROMETHAZINE HYDROCHLORIDE [Concomitant]
     Active Substance: PROMETHAZINE HYDROCHLORIDE
     Indication: Pyrexia
     Dosage: 25 MILLIGRAM
     Route: 030
     Dates: start: 20220704, end: 20220704
  18. PROMETHAZINE HYDROCHLORIDE [Concomitant]
     Active Substance: PROMETHAZINE HYDROCHLORIDE
     Indication: Allergy prophylaxis
     Dosage: 12.5 MILLIGRAM
     Route: 042
     Dates: start: 20220705, end: 20220705
  19. DEXTROSE\SODIUM CHLORIDE [Concomitant]
     Active Substance: DEXTROSE\SODIUM CHLORIDE
     Indication: Prophylaxis
     Dosage: 500 MILLILITER
     Route: 042
     Dates: start: 20220704, end: 20220704
  20. LIVE COMBINED BIFIDOBACTERIUM, LACTOBACILLUS AND ENTEROCOCCUS [Concomitant]
     Dosage: UNK
     Dates: start: 20221008, end: 20221011

REACTIONS (54)
  - Pneumonia [Recovered/Resolved]
  - Diarrhoea [Not Recovered/Not Resolved]
  - Pyrexia [Recovered/Resolved]
  - Gastrointestinal infection [Recovered/Resolved]
  - Cardiac failure [Recovered/Resolved]
  - Hypokalaemia [Recovering/Resolving]
  - Cholecystitis [Not Recovered/Not Resolved]
  - Electrocardiogram ST-T change [Not Recovered/Not Resolved]
  - White blood cell count decreased [Not Recovered/Not Resolved]
  - Aspartate aminotransferase increased [Not Recovered/Not Resolved]
  - Weight decreased [Not Recovered/Not Resolved]
  - Platelet count decreased [Not Recovered/Not Resolved]
  - Anaemia [Not Recovered/Not Resolved]
  - Lymphocyte count decreased [Recovering/Resolving]
  - Amylase increased [Recovered/Resolved]
  - Hypochloraemia [Recovered/Resolved]
  - Hypoalbuminaemia [Recovering/Resolving]
  - Blood lactate dehydrogenase increased [Recovered/Resolved]
  - Hypocalcaemia [Not Recovered/Not Resolved]
  - Blood cholinesterase decreased [Recovered/Resolved]
  - Prealbumin decreased [Recovered/Resolved]
  - White blood cell count increased [Not Recovered/Not Resolved]
  - Blood fibrinogen decreased [Not Recovered/Not Resolved]
  - Gamma-glutamyltransferase increased [Not Recovered/Not Resolved]
  - Neutrophil count decreased [Recovered/Resolved]
  - Coagulopathy [Not Recovered/Not Resolved]
  - Blood alkaline phosphatase increased [Not Recovered/Not Resolved]
  - Glutamate dehydrogenase increased [Not Recovered/Not Resolved]
  - Neutrophil count increased [Recovered/Resolved]
  - Fibrin D dimer increased [Not Recovered/Not Resolved]
  - Hepatic steatosis [Not Recovered/Not Resolved]
  - Splenomegaly [Not Recovered/Not Resolved]
  - Hypoglycaemia [Recovered/Resolved]
  - Blood urea increased [Recovered/Resolved]
  - Cholelithiasis [Not Recovered/Not Resolved]
  - Hyponatraemia [Recovered/Resolved]
  - Blood creatine phosphokinase decreased [Recovered/Resolved]
  - Hypophosphataemia [Recovered/Resolved]
  - Carbon dioxide decreased [Recovered/Resolved]
  - Globulins decreased [Recovered/Resolved]
  - Cystatin C increased [Not Recovered/Not Resolved]
  - Blood creatinine increased [Recovered/Resolved]
  - Sinus tachycardia [Recovered/Resolved]
  - Electrocardiogram P wave abnormal [Recovered/Resolved]
  - C-reactive protein increased [Not Recovered/Not Resolved]
  - Anxiety [Not Recovered/Not Resolved]
  - Night sweats [Not Recovered/Not Resolved]
  - Alanine aminotransferase increased [Recovered/Resolved]
  - Pleural effusion [Not Recovered/Not Resolved]
  - Paranasal cyst [Not Recovered/Not Resolved]
  - Gamma-glutamyltransferase [Not Recovered/Not Resolved]
  - Hypertriglyceridaemia [Not Recovered/Not Resolved]
  - Protein total decreased [Recovered/Resolved]
  - Off label use [Unknown]

NARRATIVE: CASE EVENT DATE: 20220704
